FAERS Safety Report 7869969-7 (Version None)
Quarter: 2011Q4

REPORT INFORMATION
  Report Type: 
  Country: None (occurrence: None)
  Receive Date: 20111028
  Receipt Date: 20110112
  Transmission Date: 20120403
  Serious: No
  Sender: FDA-Public Use
  Company Number: US-AMGEN-MUS418409

PATIENT
  Age: 19 Year
  Sex: Female
  Weight: 58.05 kg

DRUGS (2)
  1. ENBREL [Suspect]
     Indication: JUVENILE ARTHRITIS
     Dosage: UNK UNK, UNK
     Route: 058
  2. PRENATAL VITAMINS                  /01549301/ [Concomitant]

REACTIONS (2)
  - PREGNANCY [None]
  - JOINT SWELLING [None]
